FAERS Safety Report 15283805 (Version 2)
Quarter: 2018Q3

REPORT INFORMATION
  Report Type: Spontaneous
  Country: IN (occurrence: IN)
  Receive Date: 20180816
  Receipt Date: 20180828
  Transmission Date: 20181010
  Serious: Yes (Hospitalization, Other)
  Sender: FDA-Public Use
  Company Number: PHHY2018IN070500

PATIENT
  Age: 77 Year
  Sex: Female
  Weight: 73 kg

DRUGS (2)
  1. LETROZOLE. [Suspect]
     Active Substance: LETROZOLE
     Indication: BREAST CANCER METASTATIC
     Dosage: 2.5 MG, QD
     Route: 048
     Dates: start: 20170805, end: 20170924
  2. LETROZOLE. [Suspect]
     Active Substance: LETROZOLE
     Dosage: 2.5 MG, QD
     Route: 048
     Dates: start: 20170927, end: 20171015

REACTIONS (34)
  - Spinal osteoarthritis [Unknown]
  - Haemoglobin decreased [Unknown]
  - Aspartate aminotransferase increased [Unknown]
  - Alanine aminotransferase increased [Unknown]
  - Vomiting [Unknown]
  - Pyrexia [Unknown]
  - Blood alkaline phosphatase increased [Unknown]
  - Blood creatinine increased [Unknown]
  - Gamma-glutamyltransferase increased [Unknown]
  - Loss of consciousness [Unknown]
  - Liver tenderness [Unknown]
  - Cough [Unknown]
  - Pain [Unknown]
  - Cerebral microangiopathy [Unknown]
  - Blood potassium decreased [Unknown]
  - Hyponatraemia [Unknown]
  - Hypothyroidism [Unknown]
  - Cholelithiasis [Unknown]
  - Pollakiuria [Unknown]
  - Vomiting [Recovered/Resolved]
  - Nausea [Recovered/Resolved]
  - Dysuria [Unknown]
  - Gait disturbance [Unknown]
  - Sacralisation [Unknown]
  - Muscular weakness [Unknown]
  - Hyperreflexia [Unknown]
  - Diarrhoea [Recovered/Resolved]
  - Decreased appetite [Unknown]
  - Wernicke^s encephalopathy [Recovered/Resolved]
  - Nausea [Unknown]
  - Blood thyroid stimulating hormone increased [Unknown]
  - Blood chloride decreased [Unknown]
  - Fatigue [Unknown]
  - Dyspnoea [Unknown]

NARRATIVE: CASE EVENT DATE: 20170921
